FAERS Safety Report 11006130 (Version 2)
Quarter: 2015Q2

REPORT INFORMATION
  Report Type: Spontaneous
  Country: US (occurrence: US)
  Receive Date: 20150409
  Receipt Date: 20150410
  Transmission Date: 20150821
  Serious: No
  Sender: FDA-Public Use
  Company Number: US-BAYER-2015-118550

PATIENT
  Age: 44 Year
  Sex: Female

DRUGS (1)
  1. GADAVIST [Suspect]
     Active Substance: GADOBUTROL
     Indication: BONE SCAN
     Dosage: UNK UNK, ONCE
     Route: 042
     Dates: start: 20150318, end: 20150318

REACTIONS (3)
  - Rash [None]
  - Urticaria [None]
  - Medication error [None]

NARRATIVE: CASE EVENT DATE: 20150318
